FAERS Safety Report 5247613-5 (Version None)
Quarter: 2007Q1

REPORT INFORMATION
  Report Type: 
  Country: None (occurrence: None)
  Receive Date: 20070227
  Receipt Date: 20070212
  Transmission Date: 20070707
  Serious: Yes (Hospitalization)
  Sender: FDA-Public Use
  Company Number: US-ROCHE-464541

PATIENT
  Age: 53 Year
  Sex: Female
  Weight: 68 kg

DRUGS (8)
  1. PEGASYS [Suspect]
     Indication: HEPATITIS C
     Dosage: STRENGTH: 180 MCG/0.5 ML.
     Route: 058
     Dates: start: 20060815, end: 20061127
  2. PEGASYS [Suspect]
     Route: 058
  3. RIBAVIRIN [Suspect]
     Indication: HEPATITIS C
     Route: 048
     Dates: start: 20060815, end: 20061127
  4. RIBAVIRIN [Suspect]
     Route: 048
  5. BENADRYL [Suspect]
     Indication: RASH
     Dosage: TAKEN NIGHTLY INSTEAD OF 3-4 TIMES DAILY.
     Route: 048
     Dates: start: 20060825, end: 20060908
  6. ULTRAM [Concomitant]
     Indication: BACK PAIN
     Route: 048
     Dates: start: 20030615
  7. HYZAAR [Concomitant]
     Indication: HYPERTENSION
     Dates: start: 20040915
  8. CELEXA [Concomitant]
     Indication: DEPRESSION
     Dates: start: 20060615

REACTIONS (38)
  - ALOPECIA [None]
  - BURNING SENSATION [None]
  - CHILLS [None]
  - CLUBBING [None]
  - CONFUSIONAL STATE [None]
  - DEHYDRATION [None]
  - DERMATITIS INFECTED [None]
  - DIARRHOEA [None]
  - DISTURBANCE IN ATTENTION [None]
  - DIZZINESS [None]
  - DYSPNOEA [None]
  - ELECTROCARDIOGRAM P WAVE ABNORMAL [None]
  - FACE OEDEMA [None]
  - FATIGUE [None]
  - FULL BLOOD COUNT DECREASED [None]
  - GENERALISED OEDEMA [None]
  - HEART RATE INCREASED [None]
  - HYPERSENSITIVITY [None]
  - INFECTION [None]
  - INSOMNIA [None]
  - MUSCULOSKELETAL PAIN [None]
  - NAUSEA [None]
  - NON-CARDIAC CHEST PAIN [None]
  - OEDEMA PERIPHERAL [None]
  - PAIN [None]
  - PAIN IN EXTREMITY [None]
  - PRURITUS [None]
  - PSYCHOTIC DISORDER [None]
  - PYREXIA [None]
  - RASH [None]
  - RASH PAPULAR [None]
  - RED BLOOD CELL COUNT DECREASED [None]
  - SKIN DISCOLOURATION [None]
  - SKIN EXFOLIATION [None]
  - SKIN FISSURES [None]
  - TREMOR [None]
  - VISION BLURRED [None]
  - WEIGHT DECREASED [None]
